FAERS Safety Report 4704065-9 (Version None)
Quarter: 2005Q2

REPORT INFORMATION
  Report Type: 
  Country: None (occurrence: None)
  Receive Date: 20050628
  Receipt Date: 20050609
  Transmission Date: 20051028
  Serious: Yes (Other)
  Sender: FDA-Public Use
  Company Number: USA0506100013

PATIENT
  Age: 45 Year
  Sex: Female

DRUGS (2)
  1. XIGRIS [Suspect]
     Indication: SEPSIS
     Dosage: 24 UG/KG/HR
     Dates: start: 20050607, end: 20050609
  2. VASOPRESSOR AGENTS [Concomitant]

REACTIONS (4)
  - LABORATORY TEST INTERFERENCE [None]
  - MEDICATION ERROR [None]
  - MYDRIASIS [None]
  - WHITE BLOOD CELL COUNT DECREASED [None]
